FAERS Safety Report 6175802-4 (Version None)
Quarter: 2009Q2

REPORT INFORMATION
  Report Type: 
  Country: None (occurrence: None)
  Receive Date: 20090501
  Receipt Date: 20080902
  Transmission Date: 20091009
  Serious: Yes (Death, Hospitalization, Other)
  Sender: FDA-Public Use
  Company Number: US-ALEXION-A200700003

PATIENT

DRUGS (10)
  1. SOLIRIS [Suspect]
     Indication: PAROXYSMAL NOCTURNAL HAEMOGLOBINURIA
     Dosage: 600 MG, SINGLE
     Route: 042
     Dates: start: 20070417, end: 20070417
  2. BACTRIM [Suspect]
     Indication: PROPHYLAXIS
     Dosage: 1 DS, BID ON MONDAYS AND THURSDAYS
     Route: 048
     Dates: start: 20070313, end: 20070421
  3. PREDNISONE TAB [Suspect]
     Indication: HAEMOLYSIS
  4. PANTOPRAZOLE SODIUM [Concomitant]
  5. LEVOTHYROXINE SODIUM [Concomitant]
  6. DARBEPOETIN ALFA [Concomitant]
  7. FOLATE [Concomitant]
  8. VITAMIN B12 /00056201/ [Concomitant]
  9. CALCIUM WITH VITAMIN D /00944201/ [Concomitant]
  10. EPSILON AMINO-CAPROIC ACID [Concomitant]

REACTIONS (11)
  - AMMONIA INCREASED [None]
  - CONFUSIONAL STATE [None]
  - CRYPTOCOCCOSIS [None]
  - DEEP VEIN THROMBOSIS [None]
  - DERMATITIS BULLOUS [None]
  - EOSINOPHIL COUNT INCREASED [None]
  - HEADACHE [None]
  - MENINGITIS CRYPTOCOCCAL [None]
  - NEUTROPENIA [None]
  - PULMONARY EMBOLISM [None]
  - RENAL FAILURE ACUTE [None]
